FAERS Safety Report 10901748 (Version 1)
Quarter: 2015Q1

REPORT INFORMATION
  Report Type: Spontaneous
  Country: US (occurrence: US)
  Receive Date: 20150310
  Receipt Date: 20150310
  Transmission Date: 20150721
  Serious: Yes (Hospitalization, Other)
  Sender: FDA-Public Use
  Company Number: US-ABBVIE-15P-163-1355265-00

PATIENT

DRUGS (2)
  1. AXIRON [Suspect]
     Active Substance: TESTOSTERONE
     Indication: BLOOD TESTOSTERONE DECREASED
     Route: 065
     Dates: start: 20130830
  2. ANDROGEL [Suspect]
     Active Substance: TESTOSTERONE
     Indication: BLOOD TESTOSTERONE DECREASED
     Route: 061
     Dates: start: 20100728, end: 20140510

REACTIONS (15)
  - Economic problem [Unknown]
  - Deep vein thrombosis [Unknown]
  - Anxiety [Unknown]
  - Anhedonia [Unknown]
  - Acute myocardial infarction [Unknown]
  - Chest pain [Unknown]
  - Angiopathy [Unknown]
  - Cardiac disorder [Unknown]
  - Dyspnoea [Unknown]
  - Lung disorder [Unknown]
  - Pulmonary embolism [Unknown]
  - Fear [Unknown]
  - Social problem [Unknown]
  - Loss of employment [Unknown]
  - Pain [Unknown]

NARRATIVE: CASE EVENT DATE: 20130611
